FAERS Safety Report 5954109-1 (Version None)
Quarter: 2008Q4

REPORT INFORMATION
  Report Type: 
  Country: None (occurrence: None)
  Receive Date: 20081114
  Receipt Date: 20081103
  Transmission Date: 20090506
  Serious: Yes (Other)
  Sender: FDA-Public Use
  Company Number: US-ABBOTT-08P-163-0485698-00

PATIENT
  Sex: Male
  Weight: 86.26 kg

DRUGS (2)
  1. HUMIRA [Suspect]
     Indication: PSORIASIS
     Route: 058
     Dates: start: 20080701
  2. HUMIRA [Suspect]

REACTIONS (4)
  - ACCIDENTAL EXPOSURE [None]
  - ACNE [None]
  - INJECTION SITE HAEMORRHAGE [None]
  - STAPHYLOCOCCAL INFECTION [None]
